FAERS Safety Report 24423355 (Version 1)
Quarter: 2024Q4

REPORT INFORMATION
  Report Type: Report from Study
  Country: US (occurrence: US)
  Receive Date: 20241010
  Receipt Date: 20241010
  Transmission Date: 20250114
  Serious: Yes (Hospitalization)
  Sender: BAYER
  Company Number: US-BAYER-2024A142750

PATIENT
  Age: 77 Year
  Sex: Male

DRUGS (1)
  1. STIVARGA [Suspect]
     Active Substance: REGORAFENIB MONOHYDRATE
     Indication: Colon cancer
     Dosage: 120 MG, QD (FOR 21 DAYS OF A 28 DAY CYCLE)
     Route: 048
     Dates: start: 202404

REACTIONS (2)
  - Dysuria [Unknown]
  - Off label use [None]

NARRATIVE: CASE EVENT DATE: 20240401
